FAERS Safety Report 21027131 (Version 1)
Quarter: 2022Q2

REPORT INFORMATION
  Report Type: Spontaneous
  Country: US (occurrence: US)
  Receive Date: 20220630
  Receipt Date: 20220630
  Transmission Date: 20220721
  Serious: No
  Sender: FDA-Public Use
  Company Number: US-ALM-HQ-US-2022-0716

PATIENT
  Age: 60 Year
  Sex: Female
  Weight: 54.480 kg

DRUGS (1)
  1. KLISYRI [Suspect]
     Active Substance: TIRBANIBULIN
     Indication: Actinic keratosis
     Route: 061
     Dates: start: 20220329, end: 20220403

REACTIONS (7)
  - Application site dryness [Recovering/Resolving]
  - Application site exfoliation [Recovering/Resolving]
  - Application site erythema [Recovering/Resolving]
  - Application site swelling [Recovering/Resolving]
  - Application site pruritus [Recovering/Resolving]
  - Application site warmth [Recovering/Resolving]
  - Application site vesicles [Recovering/Resolving]
